FAERS Safety Report 4663328-6 (Version None)
Quarter: 2005Q2

REPORT INFORMATION
  Report Type: 
  Country: None (occurrence: None)
  Receive Date: 20050511
  Receipt Date: 20050117
  Transmission Date: 20051028
  Serious: Yes (Other)
  Sender: FDA-Public Use
  Company Number: 374724

PATIENT
  Age: 48 Year
  Sex: Male
  Weight: 87.5 kg

DRUGS (2)
  1. PEGASYS [Suspect]
     Indication: HEPATITIS C
     Dosage: 180 MCG SUBCUTANEOUS
     Route: 058
     Dates: start: 20040508, end: 20041005
  2. COPEGUS [Suspect]
     Indication: HEPATITIS C
     Dosage: 1200 MG ORAL
     Route: 048
     Dates: start: 20040508, end: 20041005

REACTIONS (3)
  - ALANINE AMINOTRANSFERASE INCREASED [None]
  - ASPARTATE AMINOTRANSFERASE INCREASED [None]
  - HYPERTENSION [None]
